FAERS Safety Report 5124904-X (Version None)
Quarter: 2006Q4

REPORT INFORMATION
  Report Type: 
  Country: None (occurrence: None)
  Receive Date: 20061006
  Receipt Date: 20060926
  Transmission Date: 20070319
  Serious: Yes (Hospitalization)
  Sender: FDA-Public Use
  Company Number: OMPQ-NO-0609S-1405

PATIENT
  Age: 64 Year
  Sex: Female

DRUGS (6)
  1. OMNIPAQUE 240 [Suspect]
     Indication: COMPLICATIONS OF TRANSPLANTED KIDNEY
     Dosage: , SINGLE DOSE, I.V.
     Route: 042
     Dates: start: 20060520, end: 20060520
  2. CYCLOSPORINE [Concomitant]
  3. ATORVASTATIN CALCIUM [Concomitant]
  4. LITHIUM CARBONATE [Concomitant]
  5. PREDNISONE TAB [Concomitant]
  6. MYCOPHENOLATE (MYCOPHENOLATE MOFETIL) [Concomitant]

REACTIONS (2)
  - OEDEMA [None]
  - SHUNT THROMBOSIS [None]
